FAERS Safety Report 9501294 (Version 3)
Quarter: 2013Q4

REPORT INFORMATION
  Report Type: Spontaneous
  Country: US (occurrence: None)
  Receive Date: 20130107
  Receipt Date: 20131226
  Transmission Date: 20140711
  Serious: Yes (Other)
  Sender: FDA-Public Use
  Company Number: PHEH2012US017750

PATIENT
  Age: 49 Year
  Sex: Female
  Weight: 72.6 kg

DRUGS (2)
  1. GILENYA [Suspect]
     Indication: MULTIPLE SCLEROSIS
     Route: 048
     Dates: start: 20120910
  2. GABAPENTIN (GABAPENTIN) [Concomitant]

REACTIONS (11)
  - Insomnia [None]
  - Fatigue [None]
  - Heart rate increased [None]
  - Dizziness [None]
  - Dry skin [None]
  - Joint swelling [None]
  - Arthralgia [None]
  - Eye pain [None]
  - Vision blurred [None]
  - Back pain [None]
  - Pruritus [None]
